FAERS Safety Report 15127875 (Version 1)
Quarter: 2018Q3

REPORT INFORMATION
  Report Type: Report from Study
  Country: US (occurrence: US)
  Receive Date: 20180710
  Receipt Date: 20180710
  Transmission Date: 20181010
  Serious: Yes (Other)
  Sender: FDA-Public Use
  Company Number: PHEH2018US026998

PATIENT
  Sex: Female

DRUGS (1)
  1. ENTRESTO [Suspect]
     Active Substance: SACUBITRIL\VALSARTAN
     Indication: CARDIAC FAILURE
     Dosage: 24 MG, BID
     Route: 048

REACTIONS (5)
  - Cardiac flutter [Recovering/Resolving]
  - Cyst [Unknown]
  - Dyspnoea [Recovering/Resolving]
  - Aphonia [Unknown]
  - Atrial fibrillation [Recovering/Resolving]
